FAERS Safety Report 8758884 (Version 3)
Quarter: 2012Q4

REPORT INFORMATION
  Report Type: 
  Country: CA (occurrence: CA)
  Receive Date: 20120829
  Receipt Date: 20120910
  Transmission Date: 20130627
  Serious: Yes (Death, Hospitalization)
  Sender: FDA-Public Use
  Company Number: PHHY2012CA073855

PATIENT
  Age: 73 Year
  Sex: Male

DRUGS (2)
  1. SANDOSTATIN LAR [Suspect]
     Indication: INTESTINAL OBSTRUCTION
     Dosage: 20 mg every 4 weeks
     Route: 030
     Dates: start: 20120502, end: 20120725
  2. SANDOSTATIN [Suspect]
     Indication: INTESTINAL OBSTRUCTION
     Dosage: UNK UKN, UNK
     Route: 058

REACTIONS (4)
  - Malignant peritoneal neoplasm [Fatal]
  - Pulmonary embolism [Unknown]
  - Intestinal obstruction [Unknown]
  - Drug ineffective [Unknown]
